FAERS Safety Report 9189406 (Version 1)
Quarter: 2013Q1

REPORT INFORMATION
  Report Type: Spontaneous
  Country: US (occurrence: None)
  Receive Date: 20130322
  Receipt Date: 20130322
  Transmission Date: 20140127
  Serious: Yes (Hospitalization)
  Sender: FDA-Public Use
  Company Number: 1123708

PATIENT
  Age: 25 Year
  Sex: Female

DRUGS (1)
  1. ALCOHOL [Suspect]
     Route: 061
     Dates: start: 20130218

REACTIONS (3)
  - Anaphylactic shock [None]
  - Local swelling [None]
  - Blister [None]
